FAERS Safety Report 8593697-6 (Version None)
Quarter: 2012Q3

REPORT INFORMATION
  Report Type: 
  Country: None (occurrence: None)
  Receive Date: 20120814
  Receipt Date: 20120802
  Transmission Date: 20120928
  Serious: Yes (Other)
  Sender: FDA-Public Use
  Company Number: IN-JHP PHARMACEUTICALS, LLC-JHP201200394

PATIENT
  Age: 22 Year
  Sex: Female

DRUGS (1)
  1. PITOCIN [Suspect]
     Indication: POSTPARTUM HAEMORRHAGE
     Dosage: 10 IU, UNK
     Route: 030

REACTIONS (2)
  - HAEMOGLOBIN DECREASED [None]
  - RETAINED PLACENTA OR MEMBRANES [None]
